FAERS Safety Report 5942348-5 (Version None)
Quarter: 2008Q4

REPORT INFORMATION
  Report Type: 
  Country: None (occurrence: None)
  Receive Date: 20081103
  Receipt Date: 20081026
  Transmission Date: 20090506
  Serious: Yes (Death)
  Sender: FDA-Public Use
  Company Number: POMP-1000370

PATIENT
  Age: 2 Year
  Sex: Male

DRUGS (5)
  1. MYOZYME [Suspect]
     Indication: GLYCOGEN STORAGE DISEASE TYPE II
     Dosage: 180 MG, Q2W, INTRAVENOUS
     Route: 042
     Dates: end: 20081013
  2. FUROSEMIDE [Concomitant]
  3. CAPOTEN (CAPOTPRIL) [Concomitant]
  4. ALDACTONE [Concomitant]
  5. ANTIBIOTICS [Concomitant]

REACTIONS (1)
  - PNEUMONIA [None]
